FAERS Safety Report 6053333-X (Version None)
Quarter: 2009Q1

REPORT INFORMATION
  Report Type: 
  Country: None (occurrence: None)
  Receive Date: 20090127
  Receipt Date: 20090119
  Transmission Date: 20090719
  Serious: Yes (Death)
  Sender: FDA-Public Use
  Company Number: B0554791A

PATIENT
  Age: 80 Year
  Sex: Female

DRUGS (18)
  1. CEFTRIAXONE [Suspect]
     Dosage: 2G PER DAY
     Route: 042
     Dates: start: 20080925, end: 20080928
  2. AMOXICILLIN + CLAVULANATE POTASSIUM [Suspect]
     Dosage: 1875MG PER DAY
     Route: 048
     Dates: start: 20080929, end: 20081005
  3. CLARITHROMYCIN [Suspect]
     Dosage: 500MG PER DAY
     Route: 048
     Dates: start: 20080929, end: 20081005
  4. CLARITHROMYCIN [Suspect]
     Dosage: 500MG PER DAY
     Route: 042
     Dates: start: 20080925, end: 20080928
  5. GLICLAZIDE [Concomitant]
     Dosage: 320MG PER DAY
     Route: 048
  6. OMEPRAZOLE [Concomitant]
     Dosage: 20MG PER DAY
     Route: 048
  7. PREDNISOLONE [Concomitant]
     Indication: CHRONIC OBSTRUCTIVE PULMONARY DISEASE
     Dosage: 40MG PER DAY
     Route: 048
     Dates: start: 20080925, end: 20080929
  8. COMBIVENT [Concomitant]
     Indication: CHRONIC OBSTRUCTIVE PULMONARY DISEASE
     Route: 055
  9. FRUSEMIDE [Concomitant]
     Indication: CARDIAC FAILURE
     Dosage: 80MG PER DAY
     Route: 048
  10. TIOTROPIUM BROMIDE [Concomitant]
     Indication: CHRONIC OBSTRUCTIVE PULMONARY DISEASE
     Dosage: 18MCG PER DAY
     Route: 055
  11. SALBUTAMOL [Concomitant]
     Indication: CHRONIC OBSTRUCTIVE PULMONARY DISEASE
     Route: 055
  12. ADCAL D3 [Concomitant]
     Route: 048
  13. METFORMIN HCL [Concomitant]
     Dosage: 500MG PER DAY
     Route: 065
  14. SERETIDE [Concomitant]
     Indication: CHRONIC OBSTRUCTIVE PULMONARY DISEASE
     Route: 055
  15. ENOXAPARIN SODIUM [Concomitant]
     Indication: THROMBOSIS PROPHYLAXIS
     Dosage: 40MG PER DAY
     Route: 065
     Dates: start: 20080926, end: 20081010
  16. OXYNORM [Concomitant]
     Dosage: 2MG PER DAY
     Route: 048
     Dates: start: 20081009
  17. FRUSEMIDE [Concomitant]
     Dosage: 80MG PER DAY
     Route: 042
     Dates: start: 20080926, end: 20081001
  18. INSULIN [Concomitant]

REACTIONS (3)
  - BLOOD CREATININE INCREASED [None]
  - CLOSTRIDIUM DIFFICILE COLITIS [None]
  - RENAL FAILURE ACUTE [None]
